FAERS Safety Report 14225417 (Version 1)
Quarter: 2017Q4

REPORT INFORMATION
  Report Type: Spontaneous
  Country: US (occurrence: US)
  Receive Date: 20171127
  Receipt Date: 20171127
  Transmission Date: 20180321
  Serious: No
  Sender: FDA-Public Use
  Company Number: US-PFIZER INC-2017505952

PATIENT
  Age: 52 Year
  Sex: Female

DRUGS (1)
  1. EUCRISA [Suspect]
     Active Substance: CRISABOROLE
     Indication: SEBORRHOEIC DERMATITIS
     Dosage: UNK
     Route: 061
     Dates: start: 20171024

REACTIONS (1)
  - Application site pain [Unknown]
